FAERS Safety Report 16596982 (Version 1)
Quarter: 2019Q3

REPORT INFORMATION
  Report Type: Spontaneous
  Country: US (occurrence: US)
  Receive Date: 20190605
  Receipt Date: 20190605
  Transmission Date: 20191004
  Serious: Yes (Other)
  Sender: FDA-Public Use
  Company Number: None

PATIENT
  Age: 50 Year
  Sex: Female

DRUGS (2)
  1. OLOPATADINE HYDROCHLORIDE NASAL [Suspect]
     Active Substance: OLOPATADINE HYDROCHLORIDE
     Indication: RHINITIS
     Dosage: ?          OTHER DOSE:665MCG/INH 2 SPRAY;?
     Route: 045
     Dates: start: 20170316, end: 20170320
  2. OLOPATADINE HYDROCHLORIDE NASAL [Suspect]
     Active Substance: OLOPATADINE HYDROCHLORIDE
     Indication: RHINITIS ALLERGIC

REACTIONS (4)
  - Dyspnoea [None]
  - Eye swelling [None]
  - Nasal congestion [None]
  - Ocular hyperaemia [None]

NARRATIVE: CASE EVENT DATE: 20170320
